FAERS Safety Report 9061927 (Version 1)
Quarter: 2013Q1

REPORT INFORMATION
  Report Type: Spontaneous
  Country: GB (occurrence: None)
  Receive Date: 20130118
  Receipt Date: 20130118
  Transmission Date: 20140127
  Serious: Yes (Hospitalization)
  Sender: FDA-Public Use
  Company Number: AUR-APL-2012-01649

PATIENT
  Age: 73 Year
  Sex: Male

DRUGS (7)
  1. OLANZAPINE [Suspect]
     Indication: BIPOLAR DISORDER
     Dosage: (5 MG, 1 IN 1 D)
     Route: 048
     Dates: start: 20110830, end: 20120315
  2. DOMPERIDONE (DOMPERIDONE) [Concomitant]
     Indication: PRODUCT USED FOR UNKNOWN INDICATION
  3. ESOMEPRAZOLE (ESOMEPRAZOLE) [Concomitant]
     Indication: PRODUCT USED FOR UNKNOWN INDICATION
  4. FINASTERIDE (FINASTERIDE) [Concomitant]
     Indication: PRODUCT USED FOR UNKNOWN INDICATION
  5. LOFEPRAMINE (LOFEPRAMINE) [Concomitant]
     Indication: PRODUCT USED FOR UNKNOWN INDICATION
  6. PRIADEL (LITHIUM CARBONATE) [Concomitant]
     Indication: PRODUCT USED FOR UNKNOWN INDICATION
  7. PRIADEL (LITHIUM CARBONATE) [Concomitant]
     Indication: BIPOLAR DISORDER

REACTIONS (7)
  - Diarrhoea [None]
  - Myalgia [None]
  - Urine output decreased [None]
  - Neuroleptic malignant syndrome [None]
  - Blood creatine phosphokinase increased [None]
  - Blood creatinine increased [None]
  - Hypophagia [None]
